FAERS Safety Report 13656673 (Version 3)
Quarter: 2017Q3

REPORT INFORMATION
  Report Type: Spontaneous
  Country: JP (occurrence: JP)
  Receive Date: 20170615
  Receipt Date: 20170711
  Transmission Date: 20171127
  Serious: Yes (Hospitalization, Other)
  Sender: FDA-Public Use
  Company Number: JP-ELI_LILLY_AND_COMPANY-JP201703007970

PATIENT
  Age: 67 Year
  Sex: Male
  Weight: 47 kg

DRUGS (2)
  1. ERBITUX [Suspect]
     Active Substance: CETUXIMAB
     Indication: HYPOPHARYNGEAL CANCER
     Dosage: 630 MG, UNKNOWN
     Route: 041
     Dates: start: 20161221, end: 20161221
  2. ERBITUX [Suspect]
     Active Substance: CETUXIMAB
     Dosage: 390 MG, WEEKLY (1/W)
     Route: 041
     Dates: start: 20161228, end: 20170117

REACTIONS (3)
  - Blood beta-D-glucan increased [Recovered/Resolved]
  - Staphylococcal infection [Recovered/Resolved]
  - Interstitial lung disease [Recovered/Resolved with Sequelae]

NARRATIVE: CASE EVENT DATE: 20170116
